FAERS Safety Report 8265526-1 (Version None)
Quarter: 2012Q2

REPORT INFORMATION
  Report Type: 
  Country: None (occurrence: None)
  Receive Date: 20120406
  Receipt Date: 20120330
  Transmission Date: 20120825
  Serious: Yes (Hospitalization)
  Sender: FDA-Public Use
  Company Number: CA-SANOFI-AVENTIS-2012SA022643

PATIENT
  Age: 57 Year
  Sex: Male
  Weight: 84.6 kg

DRUGS (13)
  1. ELOXATIN [Suspect]
     Route: 041
     Dates: start: 20120315, end: 20120315
  2. VITALUX [Concomitant]
     Dosage: DOSE:1 UNIT(S)
     Dates: start: 20020101
  3. CALCIUM/MAGNESIUM [Suspect]
     Indication: PROPHYLAXIS
     Route: 041
     Dates: start: 20111223
  4. ELOXATIN [Suspect]
     Indication: COLORECTAL CANCER
     Route: 041
     Dates: start: 20111223, end: 20111223
  5. GLUTAMINE [Suspect]
     Indication: PROPHYLAXIS
     Route: 048
     Dates: start: 20111221
  6. LEUCOVORIN CALCIUM [Suspect]
     Route: 041
     Dates: start: 20120315, end: 20120315
  7. LEUCOVORIN CALCIUM [Suspect]
     Indication: COLORECTAL CANCER
     Route: 041
     Dates: start: 20111223, end: 20111223
  8. FERROUS SULFATE TAB [Concomitant]
     Dates: start: 20111001
  9. FLUOROURACIL [Suspect]
     Indication: COLORECTAL CANCER
     Route: 041
     Dates: start: 20111223, end: 20111223
  10. GLUCOPHAGE [Concomitant]
     Dates: start: 19940101
  11. VIAGRA [Concomitant]
     Dates: start: 20020101
  12. FLUOROURACIL [Suspect]
     Route: 041
     Dates: start: 20120315, end: 20120315
  13. ATORVASTATIN [Concomitant]
     Dates: start: 19940101

REACTIONS (1)
  - CEREBRAL ISCHAEMIA [None]
